FAERS Safety Report 5122091-5 (Version None)
Quarter: 2006Q4

REPORT INFORMATION
  Report Type: 
  Country: None (occurrence: None)
  Receive Date: 20061003
  Receipt Date: 20060925
  Transmission Date: 20070319
  Serious: Yes (Other)
  Sender: FDA-Public Use
  Company Number: 2006115278

PATIENT
  Age: 10 Year
  Sex: Male
  Weight: 28.123 kg

DRUGS (1)
  1. GENOTROPIN [Suspect]
     Indication: GROWTH HORMONE DEFICIENCY
     Dosage: (1.4 MG, SIX TIMES/WEEK), SUBCUTANEOUS
     Route: 058
     Dates: start: 20060701

REACTIONS (1)
  - VISUAL ACUITY REDUCED [None]
